FAERS Safety Report 16842252 (Version 2)
Quarter: 2020Q2

REPORT INFORMATION
  Report Type: Report from Study
  Country: None (occurrence: CA)
  Receive Date: 20190924
  Receipt Date: 20200406
  Transmission Date: 20200713
  Serious: Yes (Other)
  Sender: FDA-Public Use
  Company Number: CA-ABBVIE-19K-028-2926060-00

PATIENT
  Age: 37 Year
  Sex: Male

DRUGS (11)
  1. HUMIRA [Suspect]
     Active Substance: ADALIMUMAB
     Route: 058
  2. LEVETIRACETAM. [Concomitant]
     Active Substance: LEVETIRACETAM
     Indication: PRODUCT USED FOR UNKNOWN INDICATION
  3. KEPPRA [Concomitant]
     Active Substance: LEVETIRACETAM
     Indication: PRODUCT USED FOR UNKNOWN INDICATION
  4. LAMICTAL [Concomitant]
     Active Substance: LAMOTRIGINE
     Dosage: 100 MG FOR WEEK 7 AND 8
     Route: 048
     Dates: start: 20190810
  5. LAMICTAL [Concomitant]
     Active Substance: LAMOTRIGINE
     Dosage: 150 MG WEEK 9 ONWARD
     Route: 048
     Dates: start: 20190810
  6. LAMICTAL [Concomitant]
     Active Substance: LAMOTRIGINE
     Dosage: 50 MG FOR WEEK 5 AND 6
     Route: 048
     Dates: start: 20190810
  7. DILANTIN [Concomitant]
     Active Substance: PHENYTOIN
     Indication: PRODUCT USED FOR UNKNOWN INDICATION
  8. HUMIRA [Suspect]
     Active Substance: ADALIMUMAB
     Indication: CROHN^S DISEASE
     Route: 058
     Dates: start: 20090905
  9. VITAMIN D3 [Concomitant]
     Active Substance: CHOLECALCIFEROL
     Indication: PRODUCT USED FOR UNKNOWN INDICATION
     Route: 048
  10. LAMICTAL [Concomitant]
     Active Substance: LAMOTRIGINE
     Indication: PRODUCT USED FOR UNKNOWN INDICATION
     Dosage: 2.25 MG FOR WEEK 1
     Route: 048
     Dates: start: 20190810
  11. LAMICTAL [Concomitant]
     Active Substance: LAMOTRIGINE
     Dosage: 50 MG FOR WEEK 3 AND 4
     Route: 048
     Dates: start: 20190810

REACTIONS (12)
  - Epilepsy [Recovered/Resolved]
  - Accommodation disorder [Unknown]
  - Central nervous system lesion [Recovered/Resolved]
  - Feeling abnormal [Unknown]
  - Sensory disturbance [Recovering/Resolving]
  - Thinking abnormal [Recovering/Resolving]
  - Fatigue [Unknown]
  - Anxiety [Recovering/Resolving]
  - Partial seizures with secondary generalisation [Unknown]
  - Heart rate increased [Recovering/Resolving]
  - Therapeutic product effect decreased [Unknown]
  - Enteritis [Recovering/Resolving]

NARRATIVE: CASE EVENT DATE: 201901
